FAERS Safety Report 23354355 (Version 2)
Quarter: 2024Q1

REPORT INFORMATION
  Report Type: Report from Study
  Country: US (occurrence: US)
  Receive Date: 20240101
  Receipt Date: 20240206
  Transmission Date: 20240410
  Serious: No
  Sender: FDA-Public Use
  Company Number: US-SA-2023SA397945

PATIENT
  Age: 37 Year
  Sex: Female
  Weight: 90.7 kg

DRUGS (21)
  1. AGALSIDASE BETA [Suspect]
     Active Substance: AGALSIDASE BETA
     Indication: Fabry^s disease
     Dosage: 90 MG, QOW
     Route: 042
     Dates: start: 20140728
  2. EPINEPHRINE [Concomitant]
     Active Substance: EPINEPHRINE
     Dosage: UNK
  3. STERILE WATER [Concomitant]
     Active Substance: WATER
     Dosage: UNK
  4. SODIUM CHLORIDE [Concomitant]
     Active Substance: SODIUM CHLORIDE
     Dosage: UNK
  5. ACETAMINOPHEN [Concomitant]
     Active Substance: ACETAMINOPHEN
     Dosage: UNK
  6. CLARITIN [Concomitant]
     Active Substance: LORATADINE
     Dosage: UNK
  7. TUMS EX [Concomitant]
     Active Substance: CALCIUM CARBONATE
     Dosage: UNK
  8. FOLIC ACID [Concomitant]
     Active Substance: FOLIC ACID
     Dosage: UNK
  9. ADVIL [Concomitant]
     Active Substance: IBUPROFEN
     Dosage: UNK
  10. PEPCID [Concomitant]
     Active Substance: FAMOTIDINE
     Dosage: UNK
  11. SODIUM CHLORIDE [Concomitant]
     Active Substance: SODIUM CHLORIDE
     Dosage: UNK
  12. HEPARIN [Concomitant]
     Active Substance: HEPARIN SODIUM
     Dosage: UNK
  13. ESTRACE [Concomitant]
     Active Substance: ESTRADIOL
     Dosage: UNK
  14. DIPHENHYDRAMINE HYDROCHLORIDE [Concomitant]
     Active Substance: DIPHENHYDRAMINE HYDROCHLORIDE
     Dosage: UNK
  15. VITAMIN D3 [Concomitant]
     Active Substance: CHOLECALCIFEROL
     Dosage: UNK
  16. LIDOCAINE [Concomitant]
     Active Substance: LIDOCAINE
     Dosage: UNK
  17. OMNITROPE [Concomitant]
     Active Substance: SOMATROPIN
     Dosage: UNK
  18. LABETALOL [Concomitant]
     Active Substance: LABETALOL\LABETALOL HYDROCHLORIDE
     Dosage: UNK
  19. PROMETRIUM [Concomitant]
     Active Substance: PROGESTERONE
     Dosage: UNK
  20. ASPIRIN [Concomitant]
     Active Substance: ASPIRIN
     Dosage: UNK
  21. HGH [Concomitant]
     Dosage: UNK

REACTIONS (7)
  - Retching [Unknown]
  - Diarrhoea [Unknown]
  - Chills [Unknown]
  - Nausea [Unknown]
  - COVID-19 [Recovered/Resolved]
  - Influenza like illness [Recovered/Resolved]
  - In vitro fertilisation [Unknown]

NARRATIVE: CASE EVENT DATE: 20230101
